FAERS Safety Report 21260265 (Version 2)
Quarter: 2022Q4

REPORT INFORMATION
  Report Type: Report from Study
  Country: US (occurrence: US)
  Receive Date: 20220826
  Receipt Date: 20221005
  Transmission Date: 20230112
  Serious: No
  Sender: FDA-Public Use
  Company Number: US-LUNDBECK-DKLU3051521

PATIENT
  Age: 50 Year
  Sex: Female

DRUGS (11)
  1. VYEPTI [Suspect]
     Active Substance: EPTINEZUMAB-JJMR
     Indication: Migraine
     Route: 041
     Dates: start: 20220809
  2. DIVIGEL [Concomitant]
     Active Substance: ESTRADIOL
     Indication: Product used for unknown indication
     Dosage: 1.25 MG/1.25 GRAM (0.1%)
     Route: 061
     Dates: start: 20220712
  3. EVAMIST [Concomitant]
     Active Substance: ESTRADIOL
     Indication: Product used for unknown indication
     Route: 062
     Dates: start: 20210726
  4. HYALURONIC ACID [Concomitant]
     Active Substance: HYALURONIC ACID
     Indication: Product used for unknown indication
     Route: 065
     Dates: start: 20220707
  5. VITAMINS [Concomitant]
     Active Substance: VITAMINS
     Indication: Product used for unknown indication
     Route: 048
     Dates: start: 20210623
  6. OMEPRAZOLE [Concomitant]
     Active Substance: OMEPRAZOLE
     Indication: Product used for unknown indication
     Route: 048
     Dates: start: 20211105
  7. SUMATRIPTAN [Concomitant]
     Active Substance: SUMATRIPTAN
     Indication: Product used for unknown indication
     Dosage: TAKE 1 TABLET AFTER ONSET OF MIGRAINE, MAY REPEAT AFTER 2 HOURS IF HEADACHE RETURNS, NOT TO EXCEED 2
     Route: 048
     Dates: start: 20220707
  8. SUMATRIPTAN [Concomitant]
     Active Substance: SUMATRIPTAN
     Dosage: 6 MG/0.5 ML; INJECT 0.5 ML AS NEEDED FOR 30 DAYS
     Route: 058
  9. VITAMIN C [Concomitant]
     Active Substance: ASCORBIC ACID
     Indication: Product used for unknown indication
     Route: 065
     Dates: start: 20210623
  10. VITAMIN D [Concomitant]
     Active Substance: VITAMIN D NOS
     Indication: Product used for unknown indication
     Route: 065
     Dates: start: 20210623
  11. ZINC [Concomitant]
     Active Substance: ZINC
     Indication: Product used for unknown indication
     Route: 065
     Dates: start: 20210623

REACTIONS (2)
  - Oropharyngeal pain [Recovered/Resolved]
  - Hypersensitivity [Recovered/Resolved]

NARRATIVE: CASE EVENT DATE: 20220812
